FAERS Safety Report 4962004-X (Version None)
Quarter: 2006Q2

REPORT INFORMATION
  Report Type: 
  Country: None (occurrence: None)
  Receive Date: 20060404
  Receipt Date: 20051207
  Transmission Date: 20061013
  Serious: Yes (Hospitalization)
  Sender: FDA-Public Use
  Company Number: US-MERCK-0512USA01278

PATIENT
  Age: 45 Year
  Sex: Female
  Weight: 109 kg

DRUGS (9)
  1. VIOXX [Suspect]
     Indication: ARTHRITIS
     Route: 048
     Dates: start: 20020101, end: 20040901
  2. VIOXX [Suspect]
     Route: 048
     Dates: start: 20020101, end: 20040901
  3. VIOXX [Suspect]
     Indication: KNEE OPERATION
     Route: 048
     Dates: start: 20020101, end: 20040901
  4. VIOXX [Suspect]
     Route: 048
     Dates: start: 20020101, end: 20040901
  5. ESKALITH AND ESKALITH CR [Concomitant]
     Indication: BIPOLAR DISORDER
     Route: 065
  6. VITAMINS (UNSPECIFIED) [Concomitant]
     Route: 065
  7. KAVA [Concomitant]
     Route: 065
     Dates: start: 19880101
  8. VALIUM [Concomitant]
     Indication: ANXIETY
     Route: 065
  9. PREVACID [Concomitant]
     Indication: DYSPEPSIA
     Route: 065

REACTIONS (5)
  - ARTHROPATHY [None]
  - CHRONIC FATIGUE SYNDROME [None]
  - CONVERSION DISORDER [None]
  - DEPRESSION [None]
  - TRANSIENT ISCHAEMIC ATTACK [None]
